FAERS Safety Report 24660305 (Version 1)
Quarter: 2024Q4

REPORT INFORMATION
  Report Type: Spontaneous
  Country: US (occurrence: None)
  Receive Date: 20241124
  Receipt Date: 20241124
  Transmission Date: 20250114
  Serious: Yes (Other)
  Sender: Public
  Company Number: None

PATIENT
  Age: 83 Year
  Sex: Female
  Weight: 48.15 kg

DRUGS (15)
  1. REFRESH LACRI-LUBE [Suspect]
     Active Substance: MINERAL OIL\PETROLATUM
     Indication: Product used for unknown indication
     Dosage: FREQUENCY : AT BEDTIME?
     Dates: start: 20241114, end: 20241119
  2. HYDROCHLOROTHIAZIDE [Concomitant]
     Active Substance: HYDROCHLOROTHIAZIDE
  3. LOSARTAN POTASSIUM [Concomitant]
     Active Substance: LOSARTAN POTASSIUM
  4. CELECOXIB [Concomitant]
     Active Substance: CELECOXIB
  5. FI AER [Concomitant]
  6. 500/50 OXYGEN [Concomitant]
  7. VITAMIN B [Concomitant]
     Active Substance: VITAMIN B
  8. Magnesium Vitamin D [Concomitant]
  9. Ardes 2 [Concomitant]
  10. CALCIUM [Concomitant]
     Active Substance: CALCIUM
  11. VITAMINS [Concomitant]
     Active Substance: VITAMINS
  12. DIETARY SUPPLEMENT [Concomitant]
     Active Substance: DIETARY SUPPLEMENT
  13. VITAMIN D [Concomitant]
     Active Substance: VITAMIN D NOS
  14. LYSINE [Concomitant]
     Active Substance: LYSINE
  15. Glucodamine Chondroitin [Concomitant]

REACTIONS (3)
  - Visual impairment [None]
  - Head discomfort [None]
  - Dizziness [None]

NARRATIVE: CASE EVENT DATE: 20241116
